FAERS Safety Report 11289593 (Version 1)
Quarter: 2015Q3

REPORT INFORMATION
  Report Type: Report from Study
  Country: AT (occurrence: AT)
  Receive Date: 20150721
  Receipt Date: 20150721
  Transmission Date: 20151125
  Serious: Yes (Other)
  Sender: FDA-Public Use
  Company Number: AT-ASTELLAS-2015US025467

PATIENT

DRUGS (5)
  1. GEMCITABINE [Suspect]
     Active Substance: GEMCITABINE\GEMCITABINE HYDROCHLORIDE
     Indication: PANCREATIC CARCINOMA METASTATIC
     Dosage: 1000 MG/M2, EVERY 2 WEEKS, DILUTED IN 250 ML SALINE ADMINISTERED AS A 100 MIN INTRAVENOUS INFUSION
     Route: 042
  2. ONDANSETRON [Concomitant]
     Active Substance: ONDANSETRON
     Indication: PREMEDICATION
     Dosage: UNK UNK, UNKNOWN FREQ.
     Route: 065
  3. ERLOTINIB [Suspect]
     Active Substance: ERLOTINIB
     Indication: PANCREATIC CARCINOMA METASTATIC
     Dosage: 100 MG, ONCE DAILY FROM DAY 1
     Route: 048
  4. DEXAMETHASONE. [Concomitant]
     Active Substance: DEXAMETHASONE
     Indication: PREMEDICATION
     Dosage: UNK UNK, UNKNOWN FREQ.
     Route: 065
  5. OXALIPLATIN. [Suspect]
     Active Substance: OXALIPLATIN
     Indication: PANCREATIC CARCINOMA METASTATIC
     Dosage: 100 MG/M2 DILUTED IN 500 ML 5% GLUCOSE, AS A 120-MIN INFUSION ON DAY 1, UNKNOWN FREQ.
     Route: 065

REACTIONS (9)
  - Thrombocytopenia [Unknown]
  - Polyneuropathy [Unknown]
  - Hyperglycaemia [Unknown]
  - Pneumonia [Unknown]
  - Bone marrow failure [Unknown]
  - Anaemia [Unknown]
  - Cystitis haemorrhagic [Unknown]
  - Cholangitis [Unknown]
  - Hypersensitivity [Unknown]
